FAERS Safety Report 17457734 (Version 12)
Quarter: 2022Q1

REPORT INFORMATION
  Report Type: Report from Study
  Country: US (occurrence: US)
  Receive Date: 20200225
  Receipt Date: 20220310
  Transmission Date: 20220423
  Serious: No
  Sender: FDA-Public Use
  Company Number: NVSC2020US053120

PATIENT
  Age: 69 Year
  Sex: Female
  Weight: 182 kg

DRUGS (3)
  1. COSENTYX [Suspect]
     Active Substance: SECUKINUMAB
     Indication: Product used for unknown indication
     Dosage: UNK
     Route: 065
     Dates: start: 20200414
  2. COSENTYX [Suspect]
     Active Substance: SECUKINUMAB
     Dosage: UNK
     Route: 065
  3. COSENTYX [Suspect]
     Active Substance: SECUKINUMAB
     Dosage: UNK
     Route: 065

REACTIONS (10)
  - Bronchitis [Unknown]
  - Cough [Unknown]
  - Illness [Unknown]
  - Alopecia [Unknown]
  - Skin exfoliation [Unknown]
  - Amnesia [Unknown]
  - Pruritus [Unknown]
  - Rash [Unknown]
  - Feeling hot [Unknown]
  - Sinus disorder [Recovered/Resolved]

NARRATIVE: CASE EVENT DATE: 20211225
